FAERS Safety Report 9381272 (Version 2)
Quarter: 2014Q1

REPORT INFORMATION
  Report Type: Spontaneous
  Country: US (occurrence: US)
  Receive Date: 20130703
  Receipt Date: 20140123
  Transmission Date: 20141002
  Serious: No
  Sender: FDA-Public Use
  Company Number: US-PFIZER INC-2013193501

PATIENT
  Age: 55 Year
  Sex: Male

DRUGS (10)
  1. SUTENT [Suspect]
     Indication: RENAL CANCER
     Dosage: 50 MG, DAILY
     Route: 048
     Dates: start: 20130222
  2. METFORMIN [Concomitant]
     Dosage: UNK
  3. GLIPIZIDE [Concomitant]
     Dosage: UNK
  4. PRAVASTATIN [Concomitant]
     Dosage: UNK
  5. LISINOPRIL [Concomitant]
     Dosage: UNK
  6. LEVOTHYROXINE [Concomitant]
     Dosage: UNK
  7. PRILOSEC [Concomitant]
     Dosage: UNK
  8. NOVOLIN R [Concomitant]
     Dosage: 70/30, UNK
  9. FLONASE [Concomitant]
     Dosage: UNK
  10. ADVIL [Concomitant]
     Dosage: UNK

REACTIONS (3)
  - Pain in extremity [Unknown]
  - Haemoptysis [Recovered/Resolved]
  - Abdominal pain [Unknown]
